FAERS Safety Report 8254943-1 (Version None)
Quarter: 2012Q2

REPORT INFORMATION
  Report Type: 
  Country: None (occurrence: None)
  Receive Date: 20120403
  Receipt Date: 20120327
  Transmission Date: 20120825
  Serious: No
  Sender: FDA-Public Use
  Company Number: US-PFIZER INC-2012081720

PATIENT
  Sex: Male
  Weight: 92.971 kg

DRUGS (5)
  1. MULTI-VITAMINS [Concomitant]
     Dosage: UNK
  2. BYETTA [Concomitant]
     Indication: TYPE 2 DIABETES MELLITUS
     Dosage: 10 MG, 2X/DAY
  3. DIOVAN [Concomitant]
     Indication: HYPERTENSION
     Dosage: 160 MG, DAILY
  4. VIAGRA [Suspect]
     Indication: SEXUAL DYSFUNCTION
     Dosage: 100 MG, AS NEEDED
     Dates: start: 20020101, end: 20120101
  5. GLIPIZIDE [Concomitant]
     Indication: TYPE 2 DIABETES MELLITUS
     Dosage: 5 MG, 3X/DAY

REACTIONS (2)
  - DEPRESSED MOOD [None]
  - SEXUAL DYSFUNCTION [None]
